FAERS Safety Report 5186720-2 (Version None)
Quarter: 2006Q4

REPORT INFORMATION
  Report Type: 
  Country: None (occurrence: None)
  Receive Date: 20061211
  Receipt Date: 20061129
  Transmission Date: 20070319
  Serious: Yes (Hospitalization)
  Sender: FDA-Public Use
  Company Number: 200610384BBE

PATIENT
  Sex: Male

DRUGS (2)
  1. GAMUNEX [Suspect]
     Indication: POLYMYOSITIS
     Dosage: INTRAVENOUS
     Route: 042
  2. AUGMENTIN '125' [Concomitant]

REACTIONS (5)
  - ASTHENIA [None]
  - BLOOD CREATINE INCREASED [None]
  - BLOOD CREATINE PHOSPHOKINASE INCREASED [None]
  - DRUG EFFECT DECREASED [None]
  - DYSPNOEA [None]
